FAERS Safety Report 10068969 (Version 1)
Quarter: 2014Q2

REPORT INFORMATION
  Report Type: Spontaneous
  Country: US (occurrence: US)
  Receive Date: 20140409
  Receipt Date: 20140409
  Transmission Date: 20141212
  Serious: Yes (Hospitalization, Other)
  Sender: FDA-Public Use
  Company Number: US-FRI-1000066224

PATIENT
  Age: 53 Year
  Sex: Female

DRUGS (5)
  1. TEFLARO [Suspect]
     Indication: SKIN INFECTION
     Dosage: 1200 MG
     Route: 042
     Dates: start: 20140219, end: 20140221
  2. PEPCID AC [Concomitant]
  3. NEURONTIN [Concomitant]
  4. ZANAFLEX [Concomitant]
  5. LOVENOX [Concomitant]

REACTIONS (6)
  - Necrotising fasciitis [Unknown]
  - Cardiac failure [Unknown]
  - Respiratory failure [Unknown]
  - Renal failure [Unknown]
  - Pyrexia [Recovered/Resolved]
  - Drug ineffective [Recovered/Resolved]
